FAERS Safety Report 5123087-X (Version None)
Quarter: 2006Q4

REPORT INFORMATION
  Report Type: 
  Country: None (occurrence: None)
  Receive Date: 20061004
  Receipt Date: 20061004
  Transmission Date: 20070319
  Serious: Yes (Hospitalization)
  Sender: FDA-Public Use
  Company Number: None

PATIENT
  Age: 82 Year
  Sex: Female
  Weight: 88.4514 kg

DRUGS (1)
  1. EZETIMIBE 10 MG MERCK [Suspect]
     Indication: HYPERLIPIDAEMIA
     Dosage: 10 MG ONCE DAILY PO
     Route: 048
     Dates: start: 20050901, end: 20060927

REACTIONS (4)
  - ABDOMINAL PAIN [None]
  - ALANINE AMINOTRANSFERASE INCREASED [None]
  - ASPARTATE AMINOTRANSFERASE INCREASED [None]
  - TRANSAMINASES INCREASED [None]
